FAERS Safety Report 5484848-0 (Version None)
Quarter: 2007Q4

REPORT INFORMATION
  Report Type: 
  Country: None (occurrence: None)
  Receive Date: 20071010
  Receipt Date: 20070925
  Transmission Date: 20080405
  Serious: Yes (Death)
  Sender: FDA-Public Use
  Company Number: 2007BM000128

PATIENT
  Sex: Female

DRUGS (5)
  1. PREDNISONE [Suspect]
     Indication: PROTEIN-LOSING GASTROENTEROPATHY
     Dosage: 0.8 MG/KG;QD; 1.0 MG/KG;QD; 10 MG;QD;
  2. PREDNISONE [Suspect]
     Indication: SYSTEMIC LUPUS ERYTHEMATOSUS
     Dosage: 0.8 MG/KG;QD; 1.0 MG/KG;QD; 10 MG;QD;
  3. AZATHIOPRINE [Suspect]
     Indication: PROTEIN-LOSING GASTROENTEROPATHY
     Dosage: 1 MG/KG;QD; 2 MG/KG;QD;
  4. AZATHIOPRINE [Suspect]
     Indication: SYSTEMIC LUPUS ERYTHEMATOSUS
     Dosage: 1 MG/KG;QD; 2 MG/KG;QD;
  5. ORAPRED [Suspect]

REACTIONS (1)
  - PULMONARY HYPERTENSION [None]
